FAERS Safety Report 9331398 (Version 3)
Quarter: 2018Q4

REPORT INFORMATION
  Report Type: Report from Study
  Country: JP (occurrence: JP)
  Receive Date: 20130605
  Receipt Date: 20181004
  Transmission Date: 20190205
  Serious: Yes (Other)
  Sender: FDA-Public Use
  Company Number: PHHY2011JP82577

PATIENT
  Age: 65 Year
  Sex: Male

DRUGS (14)
  1. GASTER [Concomitant]
     Active Substance: FAMOTIDINE
     Indication: CHRONIC GASTRITIS
     Dosage: 20 MG, UNK
     Route: 048
  2. AMARYL [Concomitant]
     Active Substance: GLIMEPIRIDE
     Indication: DIABETES MELLITUS
     Dosage: 1 MG, UNK
     Route: 048
  3. BAYASPIRIN [Concomitant]
     Active Substance: ASPIRIN
     Indication: DIABETES MELLITUS
     Dosage: 100 MG
     Route: 048
  4. TAKEPRON [Concomitant]
     Active Substance: LANSOPRAZOLE
     Indication: PRODUCT USED FOR UNKNOWN INDICATION
     Dosage: 15 MG, UNK
     Route: 048
     Dates: start: 20111026
  5. METFORMIN [Concomitant]
     Active Substance: METFORMIN HYDROCHLORIDE
     Indication: DIABETES MELLITUS
     Dosage: 750 MG
     Route: 048
  6. TASIGNA [Suspect]
     Active Substance: NILOTINIB
     Indication: CHRONIC MYELOID LEUKAEMIA
     Dosage: 600 MG, DAILY
     Route: 048
     Dates: start: 20110419
  7. ACTOS [Concomitant]
     Active Substance: PIOGLITAZONE HYDROCHLORIDE
     Indication: DIABETES MELLITUS
     Dosage: 30 MG
     Route: 048
  8. METGLUCO [Concomitant]
     Active Substance: METFORMIN HYDROCHLORIDE
     Indication: PRODUCT USED FOR UNKNOWN INDICATION
     Dosage: 1.5 MG, UNK
     Route: 048
     Dates: start: 20111026
  9. BEZATATE [Concomitant]
     Active Substance: BEZAFIBRATE
     Indication: PRODUCT USED FOR UNKNOWN INDICATION
     Dosage: 200 MG, UNK
     Route: 048
     Dates: start: 20111026
  10. ZETIA [Concomitant]
     Active Substance: EZETIMIBE
     Indication: PRODUCT USED FOR UNKNOWN INDICATION
     Dosage: 10 MG, UNK
     Route: 048
     Dates: start: 20120401
  11. LANTUS [Concomitant]
     Active Substance: INSULIN GLARGINE
     Indication: DIABETES MELLITUS
     Dosage: 7 IU, DAILY
     Route: 058
     Dates: start: 20110805, end: 20111025
  12. AMARYL [Concomitant]
     Active Substance: GLIMEPIRIDE
     Dosage: 1.5 MG, UNK
     Route: 048
  13. VOGLIBOSE [Concomitant]
     Active Substance: VOGLIBOSE
     Indication: DIABETES MELLITUS
     Dosage: 0.6 MG
     Route: 048
  14. LIPIDIL [Concomitant]
     Active Substance: FENOFIBRATE
     Indication: HYPERLIPIDAEMIA
     Dosage: 1 DF, UNK
     Route: 048

REACTIONS (5)
  - Gamma-glutamyltransferase increased [Not Recovered/Not Resolved]
  - Hyperglycaemia [Not Recovered/Not Resolved]
  - Aspartate aminotransferase increased [Recovered/Resolved]
  - Alanine aminotransferase increased [Recovered/Resolved]
  - Rash [Recovering/Resolving]

NARRATIVE: CASE EVENT DATE: 20110419
